FAERS Safety Report 7377737-8 (Version None)
Quarter: 2011Q1

REPORT INFORMATION
  Report Type: 
  Country: None (occurrence: None)
  Receive Date: 20110328
  Receipt Date: 20110323
  Transmission Date: 20110831
  Serious: Yes (Other)
  Sender: FDA-Public Use
  Company Number: JP-ABBOTT-11P-087-0710504-00

PATIENT
  Sex: Female
  Weight: 64 kg

DRUGS (2)
  1. THIOPENTAL SODIUM [Concomitant]
     Indication: ANAESTHESIA
     Dosage: TOTAL FLOW: 3 L/MINUTE
     Route: 042
     Dates: start: 20091030, end: 20091030
  2. SEVOFLURANE [Suspect]
     Indication: ANAESTHESIA
     Dosage: TOTAL FLOW: 3 L/MINUTE
     Route: 055
     Dates: start: 20091030, end: 20091030

REACTIONS (5)
  - PLACENTAL DISORDER [None]
  - BLOOD PRESSURE DECREASED [None]
  - RENAL IMPAIRMENT [None]
  - OPERATIVE HAEMORRHAGE [None]
  - CAESAREAN SECTION [None]
